FAERS Safety Report 12183067 (Version 2)
Quarter: 2016Q2

REPORT INFORMATION
  Report Type: Spontaneous
  Country: US (occurrence: US)
  Receive Date: 20160316
  Receipt Date: 20160511
  Transmission Date: 20160815
  Serious: Yes (Hospitalization)
  Sender: FDA-Public Use
  Company Number: PHEH2016US006131

PATIENT
  Age: 35 Year
  Sex: Male

DRUGS (5)
  1. LOVENOX [Suspect]
     Active Substance: ENOXAPARIN SODIUM
     Indication: PRODUCT USED FOR UNKNOWN INDICATION
     Route: 065
  2. VOTRIENT [Suspect]
     Active Substance: PAZOPANIB HYDROCHLORIDE
     Indication: ANAEMIA
     Dosage: 200 MG, BID
     Route: 048
     Dates: start: 20160217, end: 20160506
  3. IRON [Concomitant]
     Active Substance: IRON
     Indication: PRODUCT USED FOR UNKNOWN INDICATION
     Route: 065
  4. PERCOCET [Concomitant]
     Active Substance: ACETAMINOPHEN\OXYCODONE HYDROCHLORIDE
     Indication: PRODUCT USED FOR UNKNOWN INDICATION
     Route: 065
  5. SYNTHROID [Concomitant]
     Active Substance: LEVOTHYROXINE SODIUM
     Indication: PRODUCT USED FOR UNKNOWN INDICATION
     Route: 065

REACTIONS (3)
  - Drug ineffective [Unknown]
  - Epistaxis [Recovered/Resolved]
  - Product use issue [Unknown]

NARRATIVE: CASE EVENT DATE: 201602
